FAERS Safety Report 12184251 (Version 1)
Quarter: 2016Q1

REPORT INFORMATION
  Report Type: Spontaneous
  Country: NL (occurrence: NL)
  Receive Date: 20160316
  Receipt Date: 20160316
  Transmission Date: 20160526
  Serious: Yes (Life-Threatening, Hospitalization)
  Sender: FDA-Public Use
  Company Number: NL-JNJFOC-20160301134

PATIENT
  Age: 54 Year
  Sex: Female

DRUGS (2)
  1. TERBINAFINE. [Suspect]
     Active Substance: TERBINAFINE
     Indication: TINEA INFECTION
     Route: 048
     Dates: start: 20160118, end: 20160205
  2. KETOCONAZOLE. [Suspect]
     Active Substance: KETOCONAZOLE
     Indication: TINEA INFECTION
     Dosage: 20MG/G
     Route: 003
     Dates: start: 20160105, end: 20160205

REACTIONS (4)
  - Vasodilatation [Recovering/Resolving]
  - Swelling [Recovering/Resolving]
  - Urticaria [Recovering/Resolving]
  - Angioedema [Recovering/Resolving]

NARRATIVE: CASE EVENT DATE: 20160205
